FAERS Safety Report 10098720 (Version 1)
Quarter: 2014Q2

REPORT INFORMATION
  Report Type: Report from Study
  Country: US (occurrence: US)
  Receive Date: 20140423
  Receipt Date: 20140423
  Transmission Date: 20141212
  Serious: Yes (Other)
  Sender: FDA-Public Use
  Company Number: US-JNJFOC-20140412954

PATIENT
  Sex: Female
  Weight: 89.81 kg

DRUGS (13)
  1. SYNTHROID [Concomitant]
     Indication: THYROID DISORDER
     Route: 048
  2. NEXIUM [Concomitant]
     Indication: GASTRIC DISORDER
     Route: 048
  3. LOSARTAN [Concomitant]
     Indication: DIURETIC THERAPY
     Dosage: DOSE- 100/ 12.5 MG
     Route: 048
  4. COENZYME Q10 [Concomitant]
     Indication: MUSCLE SPASMS
     Route: 048
  5. HYDROCODONE [Concomitant]
     Indication: PAIN
     Dosage: DOSE- 5-325MG
     Route: 048
  6. METFORMIN ER [Concomitant]
     Indication: DIABETES MELLITUS
     Route: 048
  7. JANUVIA [Concomitant]
     Indication: DIABETES MELLITUS
     Route: 048
  8. FOLBEE [Concomitant]
     Indication: VITAMIN SUPPLEMENTATION
     Route: 048
  9. BABY ASPIRIN [Concomitant]
     Route: 048
  10. VITAMIN D [Concomitant]
     Indication: VITAMIN D DEFICIENCY
     Route: 048
  11. ZOLPIDEM [Concomitant]
     Indication: SLEEP DISORDER
     Route: 048
  12. SIMPONI [Suspect]
     Indication: PSORIATIC ARTHROPATHY
     Route: 058
  13. ATORVASTATIN [Concomitant]
     Indication: BLOOD CHOLESTEROL
     Route: 048

REACTIONS (1)
  - Staphylococcal infection [Recovered/Resolved]
